FAERS Safety Report 5678293-2 (Version None)
Quarter: 2008Q1

REPORT INFORMATION
  Report Type: 
  Country: None (occurrence: None)
  Receive Date: 20080324
  Receipt Date: 20080324
  Transmission Date: 20080703
  Serious: Yes (Other)
  Sender: FDA-Public Use
  Company Number: None

PATIENT
  Age: 52 Year
  Sex: Female
  Weight: 65.7716 kg

DRUGS (5)
  1. BONIVA [Suspect]
     Indication: OSTEOPOROSIS
     Dosage: 1 PILL MONTHLY PO
     Route: 048
     Dates: start: 20070920, end: 20071124
  2. BONIVA [Suspect]
     Indication: RESORPTION BONE INCREASED
     Dosage: 1 PILL MONTHLY PO
     Route: 048
     Dates: start: 20070920, end: 20071124
  3. PROTONIX [Concomitant]
  4. CARAFATE [Concomitant]
  5. NITROGLYCERIN [Concomitant]

REACTIONS (13)
  - BURN OESOPHAGEAL [None]
  - CHEST PAIN [None]
  - DYSPHAGIA [None]
  - GASTRITIS [None]
  - GASTROOESOPHAGEAL REFLUX DISEASE [None]
  - NAUSEA [None]
  - OESOPHAGEAL SPASM [None]
  - OESOPHAGEAL ULCER [None]
  - ORAL INTAKE REDUCED [None]
  - PAIN [None]
  - PHARYNGEAL DISORDER [None]
  - VOMITING [None]
  - WEIGHT DECREASED [None]
